FAERS Safety Report 8586107-6 (Version None)
Quarter: 2012Q3

REPORT INFORMATION
  Report Type: 
  Country: None (occurrence: None)
  Receive Date: 20120810
  Receipt Date: 20120803
  Transmission Date: 20120928
  Serious: Yes (Other)
  Sender: FDA-Public Use
  Company Number: JP-VERTEX PHARMACEUTICALS INC.-AE-2012-007473

PATIENT
  Age: 60 Year
  Sex: Male

DRUGS (27)
  1. RIBAVIRIN [Concomitant]
     Route: 048
     Dates: start: 20120525, end: 20120531
  2. PEGINTERFERON ALFA-2A [Concomitant]
     Route: 058
     Dates: start: 20120517, end: 20120517
  3. HIRUDOID [Concomitant]
     Route: 051
     Dates: start: 20120217
  4. RESTAMIN [Concomitant]
     Route: 061
     Dates: start: 20120217
  5. TELAVIC [Suspect]
     Indication: HEPATITIS C
     Route: 048
     Dates: start: 20120210, end: 20120412
  6. CONFATANIN [Concomitant]
     Route: 048
     Dates: start: 20120210
  7. TELAVIC [Suspect]
     Route: 048
     Dates: start: 20120413, end: 20120419
  8. RIBAVIRIN [Concomitant]
     Route: 048
     Dates: start: 20120518, end: 20120524
  9. PEGINTERFERON ALFA-2A [Concomitant]
     Dates: start: 20120511, end: 20120511
  10. MUCOSTA [Concomitant]
     Route: 048
     Dates: start: 20120210
  11. RIBAVIRIN [Concomitant]
     Route: 048
     Dates: start: 20120511, end: 20120517
  12. RIBAVIRIN [Concomitant]
     Route: 048
     Dates: start: 20120601
  13. PEGINTERFERON ALFA-2A [Concomitant]
     Route: 058
  14. CLARITIN [Concomitant]
     Route: 048
     Dates: start: 20120217
  15. ANTEBATE [Concomitant]
     Route: 061
     Dates: start: 20120217
  16. RIBAVIRIN [Concomitant]
     Route: 048
     Dates: start: 20120302, end: 20120315
  17. RIBOFLAVIN TAB [Concomitant]
     Route: 048
  18. RIBAVIRIN [Concomitant]
     Route: 048
     Dates: start: 20120316, end: 20120329
  19. XYZAL [Concomitant]
     Route: 048
     Dates: start: 20120316, end: 20120329
  20. RIBAVIRIN [Concomitant]
     Indication: HEPATITIS C
     Route: 048
     Dates: start: 20120210, end: 20120301
  21. RIBAVIRIN [Concomitant]
     Route: 048
     Dates: start: 20120330, end: 20120413
  22. PEGINTERFERON ALFA-2A [Concomitant]
     Indication: HEPATITIS C
     Route: 058
     Dates: start: 20120210
  23. ADEROXAL [Concomitant]
     Route: 048
  24. TELAVIC [Suspect]
     Route: 048
     Dates: start: 20120512, end: 20120520
  25. PEGINTERFERON ALFA-2A [Concomitant]
     Route: 058
     Dates: start: 20120525
  26. POLARAMINE [Concomitant]
     Route: 048
     Dates: start: 20120217, end: 20120315
  27. XYZAL [Concomitant]
     Route: 048
     Dates: start: 20120330

REACTIONS (2)
  - ANAEMIA [None]
  - NEUTROPHIL COUNT DECREASED [None]
